FAERS Safety Report 20379889 (Version 1)
Quarter: 2022Q1

REPORT INFORMATION
  Report Type: Spontaneous
  Country: RU (occurrence: None)
  Receive Date: 20220126
  Receipt Date: 20220126
  Transmission Date: 20220424
  Serious: Yes (Disabling)
  Sender: FDA-Public Use
  Company Number: RU-Eisai Medical Research-EC-2022-107373

PATIENT
  Age: 20 Year
  Sex: Female
  Weight: 51 kg

DRUGS (8)
  1. FYCOMPA [Suspect]
     Active Substance: PERAMPANEL
     Indication: Epilepsy
     Dosage: DOSE AND FREQUENCY UNKNOWN
     Route: 048
     Dates: end: 2014
  2. FYCOMPA [Suspect]
     Active Substance: PERAMPANEL
     Route: 048
     Dates: start: 2014, end: 2014
  3. FYCOMPA [Suspect]
     Active Substance: PERAMPANEL
     Route: 048
     Dates: start: 2014, end: 2015
  4. VALPROIC ACID [Concomitant]
     Active Substance: VALPROIC ACID
     Indication: Epilepsy
     Dosage: 900 MG DAILY (FREQUENCY UNKNOWN)
     Route: 065
     Dates: start: 20100101
  5. VALPROIC ACID [Concomitant]
     Active Substance: VALPROIC ACID
     Dosage: 1500 MG DAILY (FREQUENCY UNKNOWN)
     Route: 065
     Dates: end: 2013
  6. VALPROIC ACID [Concomitant]
     Active Substance: VALPROIC ACID
     Dosage: 1250 MG DAILY (FREQUENCY UNKNOWN)
     Route: 065
     Dates: start: 20140101
  7. LAMOTRIGINE [Concomitant]
     Active Substance: LAMOTRIGINE
     Indication: Epilepsy
     Dosage: 100 MG DAILY (FREQUENCY UNKNOWN)
     Route: 065
     Dates: start: 20100101, end: 2013
  8. LAMOTRIGINE [Concomitant]
     Active Substance: LAMOTRIGINE
     Dosage: 200 MG DAILY (FREQUENCY UNKNOWN)
     Route: 065
     Dates: start: 20140101, end: 2016

REACTIONS (1)
  - Gait disturbance [Recovered/Resolved]

NARRATIVE: CASE EVENT DATE: 20140101
